FAERS Safety Report 7832012-X (Version None)
Quarter: 2011Q4

REPORT INFORMATION
  Report Type: 
  Country: None (occurrence: None)
  Receive Date: 20111021
  Receipt Date: 20111012
  Transmission Date: 20120403
  Serious: Yes (Other)
  Sender: FDA-Public Use
  Company Number: JP-ASTRAZENECA-2011SE55683

PATIENT
  Age: 90 Year
  Sex: Female

DRUGS (4)
  1. SEROQUEL [Suspect]
     Route: 048
  2. LANSOPRAZOLE [Concomitant]
  3. AMOBAN [Concomitant]
  4. MELOXICAM [Concomitant]

REACTIONS (1)
  - COMA [None]
